FAERS Safety Report 22741506 (Version 6)
Quarter: 2024Q4

REPORT INFORMATION
  Report Type: Report from Study
  Country: US (occurrence: US)
  Receive Date: 20230724
  Receipt Date: 20241105
  Transmission Date: 20250115
  Serious: Yes (Other)
  Sender: NOVARTIS
  Company Number: US-002147023-NVSC2023US157721

PATIENT
  Age: 34 Year
  Sex: Female

DRUGS (1)
  1. KESIMPTA [Suspect]
     Active Substance: OFATUMUMAB
     Indication: Multiple sclerosis
     Dosage: 20 MG, QMO (MAINTENANCE DOSE)
     Route: 058

REACTIONS (10)
  - Crohn^s disease [Unknown]
  - Fatigue [Unknown]
  - Alopecia [Unknown]
  - Headache [Unknown]
  - Upper respiratory tract infection [Unknown]
  - Nasopharyngitis [Recovered/Resolved]
  - Menstrual disorder [Unknown]
  - Injection site bruising [Unknown]
  - Needle issue [Unknown]
  - Accidental exposure to product [Unknown]

NARRATIVE: CASE EVENT DATE: 20220917
